FAERS Safety Report 9798578 (Version 4)
Quarter: 2019Q3

REPORT INFORMATION
  Report Type: Spontaneous
  Country: US (occurrence: US)
  Receive Date: 20140106
  Receipt Date: 20190901
  Transmission Date: 20191005
  Serious: Yes (Death, Hospitalization, Disabling, Other)
  Sender: FDA-Public Use
  Company Number: US-009507513-1401USA000733

PATIENT
  Sex: Female
  Weight: 83.9 kg

DRUGS (2)
  1. JANUVIA [Suspect]
     Active Substance: SITAGLIPTIN PHOSPHATE
     Indication: TYPE 2 DIABETES MELLITUS
     Dosage: 100 MG, QD
     Route: 048
     Dates: start: 20070319, end: 20080109
  2. BYETTA [Suspect]
     Active Substance: EXENATIDE
     Indication: TYPE 2 DIABETES MELLITUS
     Dosage: 5-10 MCG/0.04 ML BID
     Route: 058
     Dates: start: 20080212, end: 201005

REACTIONS (25)
  - Pancreatic carcinoma metastatic [Fatal]
  - Essential hypertension [Fatal]
  - Lymphadenopathy [Unknown]
  - Chills [Unknown]
  - Splenic vein thrombosis [Unknown]
  - Splenic vein thrombosis [Unknown]
  - Neuropathy peripheral [Unknown]
  - Hepatic lesion [Unknown]
  - Intervertebral disc displacement [Unknown]
  - Malnutrition [Unknown]
  - Depression [Unknown]
  - Spleen disorder [Unknown]
  - Gastrointestinal toxicity [Unknown]
  - Diarrhoea [Unknown]
  - Asthma [Unknown]
  - Scratch [Unknown]
  - Hypercoagulation [Unknown]
  - Hypothyroidism [Unknown]
  - Abdominal pain [Unknown]
  - Type 2 diabetes mellitus [Fatal]
  - Metastases to liver [Unknown]
  - Diabetic ketoacidosis [Unknown]
  - Stapedectomy [Unknown]
  - Drug eruption [Unknown]
  - Urine analysis abnormal [Unknown]

NARRATIVE: CASE EVENT DATE: 20100208
